FAERS Safety Report 24450333 (Version 1)
Quarter: 2024Q4

REPORT INFORMATION
  Report Type: Spontaneous
  Country: US (occurrence: None)
  Receive Date: 20241016
  Receipt Date: 20241016
  Transmission Date: 20250115
  Serious: Yes (Death)
  Sender: Public
  Company Number: None

PATIENT
  Age: 50 Year
  Sex: Female

DRUGS (14)
  1. L-GLUTAMINE [Suspect]
     Active Substance: GLUTAMINE
     Indication: Sickle cell anaemia
     Dosage: FREQUENCY : TWICE A DAY;?
     Route: 048
     Dates: start: 20240806
  2. OXBRYTA [Suspect]
     Active Substance: VOXELOTOR
     Indication: Sickle cell disease
     Dosage: FREQUENCY : DAILY;?
     Route: 048
  3. HYDROXYUREA [Concomitant]
     Active Substance: HYDROXYUREA
  4. XARELTO [Concomitant]
     Active Substance: RIVAROXABAN
  5. CYANOCOBALAMIN [Concomitant]
     Active Substance: CYANOCOBALAMIN
  6. FOLIC ACID [Concomitant]
     Active Substance: FOLIC ACID
  7. ENDARI [Concomitant]
     Active Substance: GLUTAMINE
  8. CHLOROPHYLL CHEWABLE TABLETS [Concomitant]
  9. COENZYME Q10 [Concomitant]
     Active Substance: DIETARY SUPPLEMENT\UBIDECARENONE
  10. FISH OIL [Concomitant]
     Active Substance: FISH OIL
  11. MULTIVITAMIN ADULTS [Concomitant]
  12. VITAMIN C [Concomitant]
     Active Substance: ASCORBIC ACID
  13. VITAMIN D [Concomitant]
     Active Substance: VITAMIN D NOS
  14. CALCIUM [Concomitant]
     Active Substance: CALCIUM

REACTIONS (1)
  - Sickle cell anaemia with crisis [None]

NARRATIVE: CASE EVENT DATE: 20241011
